FAERS Safety Report 11429091 (Version 1)
Quarter: 2015Q3

REPORT INFORMATION
  Report Type: Report from Study
  Country: US (occurrence: US)
  Receive Date: 20150828
  Receipt Date: 20150828
  Transmission Date: 20151125
  Serious: Yes (Hospitalization)
  Sender: FDA-Public Use
  Company Number: PHEH2015US016572

PATIENT
  Age: 47 Year
  Sex: Female

DRUGS (1)
  1. GILENYA [Suspect]
     Active Substance: FINGOLIMOD HYDROCHLORIDE
     Indication: MULTIPLE SCLEROSIS
     Dosage: 0.5 MG, QD
     Route: 048
     Dates: start: 20150414, end: 20150821

REACTIONS (4)
  - Blood pressure increased [Recovering/Resolving]
  - Visual impairment [Unknown]
  - Confusional state [Unknown]
  - Dysarthria [Unknown]

NARRATIVE: CASE EVENT DATE: 20150821
